FAERS Safety Report 14398227 (Version 1)
Quarter: 2018Q1

REPORT INFORMATION
  Report Type: Spontaneous
  Country: US (occurrence: US)
  Receive Date: 20180116
  Receipt Date: 20180116
  Transmission Date: 20180509
  Serious: No
  Sender: FDA-Public Use
  Company Number: US-BRISTOL-MYERS SQUIBB COMPANY-BMS-2018-000394

PATIENT
  Age: 49 Year
  Sex: Female
  Weight: 68.4 kg

DRUGS (3)
  1. LOMOTIL [Concomitant]
     Active Substance: ATROPINE SULFATE\DIPHENOXYLATE HYDROCHLORIDE
     Indication: DIARRHOEA
     Dosage: UNK
     Route: 065
     Dates: start: 20171121
  2. COUMADIN [Suspect]
     Active Substance: WARFARIN SODIUM
     Indication: VITAMIN K INCREASED
     Dosage: UNK
     Route: 065
  3. DIPHENOXYLATE/ATROPINE [Suspect]
     Active Substance: ATROPINE\DIPHENOXYLATE
     Indication: DIARRHOEA
     Dosage: 2 DF, BID
     Route: 065
     Dates: start: 2015

REACTIONS (12)
  - Abdominal pain upper [Recovering/Resolving]
  - Abdominal pain [Recovering/Resolving]
  - Nervousness [Unknown]
  - Muscle spasms [Unknown]
  - Discomfort [Unknown]
  - Irritable bowel syndrome [Unknown]
  - Abdominal distension [Unknown]
  - Sleep disorder [Unknown]
  - Weight increased [Unknown]
  - Nausea [Unknown]
  - Gastrointestinal pain [Unknown]
  - Mental disorder [Unknown]

NARRATIVE: CASE EVENT DATE: 20171122
